FAERS Safety Report 4586349-0 (Version None)
Quarter: 2005Q1

REPORT INFORMATION
  Report Type: 
  Country: None (occurrence: None)
  Receive Date: 20050125
  Receipt Date: 20041101
  Transmission Date: 20050727
  Serious: No
  Sender: FDA-Public Use
  Company Number: USA040876664

PATIENT
  Age: 57 Year
  Sex: Female
  Weight: 66 kg

DRUGS (2)
  1. FORTEO [Suspect]
     Indication: OSTEOPOROSIS
     Dosage: 20 UG/1 DAY
     Dates: start: 20040824, end: 20041029
  2. CALCIUM GLUCONATE [Concomitant]

REACTIONS (5)
  - ALOPECIA [None]
  - CHILLS [None]
  - FLATULENCE [None]
  - NAUSEA [None]
  - PAIN IN EXTREMITY [None]
